FAERS Safety Report 9060186 (Version 1)
Quarter: 2013Q1

REPORT INFORMATION
  Report Type: Spontaneous
  Country: US (occurrence: None)
  Receive Date: 20130206
  Receipt Date: 20130206
  Transmission Date: 20140127
  Serious: No
  Sender: FDA-Public Use
  Company Number: None

PATIENT
  Age: 87 Year
  Sex: Female
  Weight: 45.36 kg

DRUGS (1)
  1. ANASTROZOLE [Suspect]
     Indication: BREAST CANCER
     Dates: start: 20130112, end: 20130118

REACTIONS (7)
  - Anxiety [None]
  - Pelvic pain [None]
  - Diarrhoea [None]
  - Dizziness [None]
  - Asthenia [None]
  - Insomnia [None]
  - Confusional state [None]
